FAERS Safety Report 7530816-4 (Version None)
Quarter: 2011Q2

REPORT INFORMATION
  Report Type: 
  Country: None (occurrence: None)
  Receive Date: 20110607
  Receipt Date: 20110526
  Transmission Date: 20111010
  Serious: Yes (Other)
  Sender: FDA-Public Use
  Company Number: US-GILEAD-E2B_00001209

PATIENT
  Sex: Female
  Weight: 102.3 kg

DRUGS (14)
  1. AMBRISENTAN [Suspect]
     Indication: PULMONARY ARTERIAL HYPERTENSION
     Dosage: 10MG PER DAY
     Route: 048
     Dates: start: 20110114, end: 20110407
  2. VITAMIN E [Concomitant]
  3. CALCIUM MAGNESIUM [Concomitant]
  4. MUCINEX [Concomitant]
  5. OXYGEN [Concomitant]
  6. TADALAFIL [Suspect]
     Indication: PULMONARY HYPERTENSION
     Dosage: 40MG PER DAY
     Route: 048
     Dates: start: 20110114, end: 20110407
  7. BONVIVA [Concomitant]
  8. ALBUTEROL SULFATE AUTOHALER [Concomitant]
  9. CHERATUSSIN [Concomitant]
  10. LISINOPRIL AND HYDROCHLOROTHIAZIDE [Concomitant]
  11. MULTI-VITAMIN [Concomitant]
  12. IBUPROFEN [Concomitant]
  13. VITAMIN D [Concomitant]
  14. SPIRIVA [Concomitant]

REACTIONS (1)
  - TRANSAMINASES INCREASED [None]
